FAERS Safety Report 6428473-3 (Version None)
Quarter: 2009Q4

REPORT INFORMATION
  Report Type: 
  Country: None (occurrence: None)
  Receive Date: 20091105
  Receipt Date: 20091027
  Transmission Date: 20100525
  Serious: Yes (Other)
  Sender: FDA-Public Use
  Company Number: B0601642A

PATIENT
  Sex: Female

DRUGS (8)
  1. REQUIP [Suspect]
     Indication: PARKINSONISM
     Dosage: 6MG PER DAY
     Route: 048
     Dates: start: 20090122
  2. PROLOPA [Concomitant]
     Indication: PARKINSONISM
     Dosage: 125MG THREE TIMES PER DAY
     Route: 048
     Dates: start: 20090122
  3. EZETROL [Concomitant]
     Indication: HYPERCHOLESTEROLAEMIA
     Dosage: 10MG PER DAY
     Route: 048
     Dates: start: 20070101
  4. RIVOTRIL [Concomitant]
     Indication: MYALGIA
     Route: 048
  5. OMEPRAZOLE [Concomitant]
     Indication: GASTROOESOPHAGEAL REFLUX DISEASE
     Dosage: 20MG PER DAY
     Route: 048
  6. CALCIUM [Concomitant]
     Indication: OSTEOPOROSIS
     Route: 048
  7. MAGNESIUM [Concomitant]
     Indication: MYALGIA
     Route: 048
  8. BISOPROLOL [Concomitant]
     Indication: HYPERTENSION
     Dosage: 5MG PER DAY
     Route: 048

REACTIONS (1)
  - MITRAL VALVE INCOMPETENCE [None]
